FAERS Safety Report 7310518-X (Version None)
Quarter: 2011Q1

REPORT INFORMATION
  Report Type: 
  Country: None (occurrence: None)
  Receive Date: 20110224
  Receipt Date: 20101122
  Transmission Date: 20110831
  Serious: No
  Sender: FDA-Public Use
  Company Number: US-BRISTOL-MYERS SQUIBB COMPANY-15399918

PATIENT
  Age: 53 Year
  Sex: Female

DRUGS (2)
  1. METFORMIN HCL [Suspect]
     Indication: DIABETES MELLITUS
     Dates: start: 20100101
  2. LOVENOX [Interacting]
     Indication: THROMBOSIS
     Dates: start: 20100101

REACTIONS (2)
  - BLOOD DISORDER [None]
  - DRUG INTERACTION [None]
